FAERS Safety Report 25010907 (Version 1)
Quarter: 2025Q1

REPORT INFORMATION
  Report Type: Report from Study
  Country: CA (occurrence: CA)
  Receive Date: 20250225
  Receipt Date: 20250225
  Transmission Date: 20250408
  Serious: Yes (Hospitalization)
  Sender: ABBVIE
  Company Number: CA-ABBVIE-6145577

PATIENT
  Sex: Male

DRUGS (1)
  1. RINVOQ [Suspect]
     Active Substance: UPADACITINIB
     Indication: Rheumatoid arthritis
     Dosage: DOSE STRENGTH: 15MG
     Route: 048

REACTIONS (5)
  - Acute leukaemia [Unknown]
  - Abdominal pain upper [Unknown]
  - Diverticulitis [Recovering/Resolving]
  - Blood test abnormal [Unknown]
  - Red blood cell count abnormal [Unknown]
